FAERS Safety Report 23291830 (Version 2)
Quarter: 2024Q1

REPORT INFORMATION
  Report Type: Spontaneous
  Country: US (occurrence: None)
  Receive Date: 20231213
  Receipt Date: 20240212
  Transmission Date: 20240409
  Serious: No
  Sender: FDA-Public Use
  Company Number: US-Axsome Therapeutics, Inc.-AXS202309-001204

PATIENT
  Age: 43 Year
  Sex: Female

DRUGS (1)
  1. AUVELITY [Suspect]
     Active Substance: BUPROPION HYDROCHLORIDE\DEXTROMETHORPHAN HYDROBROMIDE
     Indication: Product used for unknown indication
     Route: 065

REACTIONS (6)
  - Emotional disorder [Recovered/Resolved]
  - Crying [Recovered/Resolved]
  - Psychomotor hyperactivity [Recovered/Resolved]
  - Blunted affect [Recovered/Resolved]
  - Depression [Recovered/Resolved]
  - Anxiety [Recovered/Resolved]
